FAERS Safety Report 5495620-X (Version None)
Quarter: 2007Q4

REPORT INFORMATION
  Report Type: 
  Country: None (occurrence: None)
  Receive Date: 20071018
  Receipt Date: 20070207
  Transmission Date: 20080405
  Serious: Yes (Life-Threatening, Other)
  Sender: FDA-Public Use
  Company Number: 2006052716

PATIENT
  Age: 13 Year
  Sex: Male

DRUGS (5)
  1. NEURONTIN [Suspect]
     Indication: BIPOLAR DISORDER
     Dosage: 4000 MG (400 MG, 10 IN 1 D), ORAL
     Route: 048
     Dates: start: 20000101
  2. DEXEDRINE [Concomitant]
  3. ESKALITH CR [Concomitant]
  4. PAXIL [Concomitant]
  5. RISPERDAL [Concomitant]

REACTIONS (2)
  - DRUG INEFFECTIVE [None]
  - SUICIDE ATTEMPT [None]
